FAERS Safety Report 8477601-7 (Version None)
Quarter: 2012Q2

REPORT INFORMATION
  Report Type: 
  Country: None (occurrence: None)
  Receive Date: 20120626
  Receipt Date: 20120626
  Transmission Date: 20120825
  Serious: Yes (Other)
  Sender: FDA-Public Use
  Company Number: None

PATIENT
  Age: 55 Year
  Sex: Male
  Weight: 88.6 kg

DRUGS (3)
  1. VICOPROFEN 7.5 MG (PRIOR) [Concomitant]
  2. OXYMORPHONE 10 MG (OPANA IR) (CURRENT) [Concomitant]
  3. OPANA ER [Suspect]
     Indication: PAIN MANAGEMENT
     Dosage: 20 MG 3X PER DAY ORAL
     Route: 048
     Dates: start: 20120527

REACTIONS (2)
  - PRODUCT FORMULATION ISSUE [None]
  - NO THERAPEUTIC RESPONSE [None]
